FAERS Safety Report 4849818-1 (Version None)
Quarter: 2005Q4

REPORT INFORMATION
  Report Type: 
  Country: None (occurrence: None)
  Receive Date: 20051209
  Receipt Date: 20050928
  Transmission Date: 20060501
  Serious: Yes (Hospitalization, Other)
  Sender: FDA-Public Use
  Company Number: US-MERCK-0509USA04707

PATIENT
  Age: 45 Year
  Sex: Female
  Weight: 120 kg

DRUGS (8)
  1. LESCOL [Concomitant]
     Route: 065
  2. PRINIVIL [Concomitant]
     Route: 048
  3. NORVASC [Concomitant]
     Route: 065
  4. AMITRIPTYLINE HYDROCHLORIDE [Concomitant]
     Route: 065
  5. ALLEGRA [Concomitant]
     Route: 065
  6. VIOXX [Suspect]
     Indication: ARTHRITIS
     Route: 048
     Dates: start: 20000701, end: 20020301
  7. CLONIDINE [Concomitant]
     Route: 065
  8. GLUCOPHAGE [Concomitant]
     Route: 065

REACTIONS (3)
  - CHEST PAIN [None]
  - MYOCARDIAL INFARCTION [None]
  - PAIN IN EXTREMITY [None]
